FAERS Safety Report 6298239-6 (Version None)
Quarter: 2009Q3

REPORT INFORMATION
  Report Type: 
  Country: None (occurrence: None)
  Receive Date: 20090805
  Receipt Date: 20090805
  Transmission Date: 20100115
  Serious: Yes (Other)
  Sender: FDA-Public Use
  Company Number: IN-PFIZER INC-2009230961

PATIENT
  Age: 8 Year

DRUGS (1)
  1. ATGAM [Suspect]
     Indication: APLASTIC ANAEMIA
     Dosage: 150 MG/KG, 1X/DAY
     Route: 042

REACTIONS (2)
  - CONVULSION [None]
  - MUSCULAR WEAKNESS [None]
